FAERS Safety Report 10937492 (Version 2)
Quarter: 2015Q2

REPORT INFORMATION
  Report Type: Spontaneous
  Country: US (occurrence: US)
  Receive Date: 20150321
  Receipt Date: 20150525
  Transmission Date: 20150821
  Serious: No
  Sender: FDA-Public Use
  Company Number: US-JNJFOC-20120603308

PATIENT
  Age: 35 Year
  Sex: Female

DRUGS (1)
  1. STELARA [Suspect]
     Active Substance: USTEKINUMAB
     Indication: PSORIASIS
     Dosage: LAST DOSE WAS 3 MONTHS AGO
     Route: 058

REACTIONS (2)
  - Blood potassium increased [Unknown]
  - Dizziness [Unknown]

NARRATIVE: CASE EVENT DATE: 2012
